FAERS Safety Report 9228183 (Version 1)
Quarter: 2013Q2

REPORT INFORMATION
  Report Type: Spontaneous
  Country: JP (occurrence: None)
  Receive Date: 20130410
  Receipt Date: 20130410
  Transmission Date: 20140414
  Serious: No
  Sender: FDA-Public Use
  Company Number: TCI2013A01922

PATIENT
  Age: 66 Year
  Sex: Male

DRUGS (1)
  1. TAKEPRON OD TABLETS 15 (LANSOPRAZOLE) [Suspect]
     Route: 048
     Dates: start: 201007, end: 201008

REACTIONS (1)
  - Renal failure acute [None]
